FAERS Safety Report 19727162 (Version 1)
Quarter: 2021Q3

REPORT INFORMATION
  Report Type: Spontaneous
  Country: US (occurrence: US)
  Receive Date: 20210819
  Receipt Date: 20210819
  Transmission Date: 20211014
  Serious: Yes (Other)
  Sender: FDA-Public Use
  Company Number: US-FRESENIUS MEDICAL CARE RENAL THERAPIES GROUP-FMC-2107-001162

PATIENT
  Age: 57 Year
  Sex: Male
  Weight: 55.5 kg

DRUGS (1)
  1. DELFLEX WITH DEXTROSE 1.5% LOW MAGNESIUM LOW CALCIUM [Suspect]
     Active Substance: CALCIUM CHLORIDE\DEXTROSE\MAGNESIUM CHLORIDE\SODIUM CHLORIDE\SODIUM LACTATE
     Indication: END STAGE RENAL DISEASE
     Dosage: DELFLEX AT 1900 ML FOR 5 CYCLES WITH NO LAST FILL AND NO DAYTIME EXCHANGE.
     Route: 033
     Dates: start: 20191031

REACTIONS (1)
  - Peritonitis bacterial [Recovered/Resolved]
